FAERS Safety Report 12117666 (Version 1)
Quarter: 2016Q1

REPORT INFORMATION
  Report Type: Spontaneous
  Country: US (occurrence: US)
  Receive Date: 20160226
  Receipt Date: 20160226
  Transmission Date: 20160526
  Serious: No
  Sender: FDA-Public Use
  Company Number: US-AUROBINDO-AUR-APU-2015-03240

PATIENT
  Sex: Female

DRUGS (1)
  1. CEFDINIR CAPSULES 300 MG [Suspect]
     Active Substance: CEFDINIR
     Indication: LYME DISEASE
     Dosage: 300 MG, TWO TIMES A DAY
     Route: 048
     Dates: start: 20150409

REACTIONS (1)
  - Oral discomfort [Unknown]
